FAERS Safety Report 8115572-3 (Version None)
Quarter: 2012Q1

REPORT INFORMATION
  Report Type: 
  Country: None (occurrence: None)
  Receive Date: 20120206
  Receipt Date: 20120130
  Transmission Date: 20120608
  Serious: Yes (Death, Hospitalization)
  Sender: FDA-Public Use
  Company Number: GR-PFIZER INC-2012025451

PATIENT
  Age: 75 Year
  Sex: Male

DRUGS (10)
  1. CLOPIDOGREL [Suspect]
  2. METFORMIN [Concomitant]
  3. ERYTHROPOIETIN [Concomitant]
  4. LENOGRASTIM [Concomitant]
  5. DIGITALIS [Concomitant]
  6. DANAZOL [Concomitant]
  7. FUROSEMIDE [Concomitant]
  8. METHYLPREDNISOLONE [Suspect]
     Dosage: 16 MG PER DAY
  9. FOLIC ACID [Concomitant]
  10. PANTOPRAZOLE [Concomitant]

REACTIONS (4)
  - ACUTE MYOCARDIAL INFARCTION [None]
  - PNEUMONIA FUNGAL [None]
  - BONE MARROW DISORDER [None]
  - SKIN INFECTION [None]
